FAERS Safety Report 6227913-2 (Version None)
Quarter: 2009Q2

REPORT INFORMATION
  Report Type: 
  Country: None (occurrence: None)
  Receive Date: 20090612
  Receipt Date: 20090608
  Transmission Date: 20091009
  Serious: Yes (Other)
  Sender: FDA-Public Use
  Company Number: B0578192A

PATIENT

DRUGS (2)
  1. VALTREX [Suspect]
     Route: 048
  2. WARFARIN SODIUM [Concomitant]
     Route: 048

REACTIONS (1)
  - HAEMORRHAGE [None]
